FAERS Safety Report 9663778 (Version 1)
Quarter: 2013Q4

REPORT INFORMATION
  Report Type: Report from Study
  Country: ES (occurrence: ES)
  Receive Date: 20131101
  Receipt Date: 20131101
  Transmission Date: 20140711
  Serious: Yes (Other)
  Sender: FDA-Public Use
  Company Number: ES-CELGENEUS-144-50794-13103876

PATIENT
  Age: 76 Year
  Sex: 0

DRUGS (1)
  1. VIDAZA [Suspect]
     Indication: ACUTE MYELOID LEUKAEMIA
     Route: 050

REACTIONS (4)
  - Renal failure [Unknown]
  - Liver disorder [Unknown]
  - Respiratory disorder [Unknown]
  - Drug ineffective [Unknown]
